FAERS Safety Report 8601886-7 (Version None)
Quarter: 2012Q3

REPORT INFORMATION
  Report Type: 
  Country: None (occurrence: None)
  Receive Date: 20120805
  Receipt Date: 20120727
  Transmission Date: 20120928
  Serious: Yes (Hospitalization, Other)
  Sender: FDA-Public Use
  Company Number: ADR-2012-01410

PATIENT
  Sex: Female

DRUGS (4)
  1. BUPIVACAINE HCL [Concomitant]
  2. FENTANYL [Concomitant]
  3. BACLOFEN [Suspect]
     Indication: MUSCLE SPASTICITY
     Dosage: 285.3 MCG/DAY
  4. BACLOFEN [Suspect]
     Indication: MULTIPLE SCLEROSIS
     Dosage: 285.3 MCG/DAY

REACTIONS (8)
  - FALL [None]
  - NECK PAIN [None]
  - HEADACHE [None]
  - HYPONATRAEMIA [None]
  - GRAND MAL CONVULSION [None]
  - RIB FRACTURE [None]
  - CONVULSION [None]
  - MENTAL IMPAIRMENT [None]
